FAERS Safety Report 7490746-3 (Version None)
Quarter: 2011Q2

REPORT INFORMATION
  Report Type: 
  Country: None (occurrence: None)
  Receive Date: 20110519
  Receipt Date: 20090306
  Transmission Date: 20111010
  Serious: Yes (Hospitalization, Other)
  Sender: FDA-Public Use
  Company Number: US-BAYER-2011-005435

PATIENT
  Age: 76 Year
  Sex: Female
  Weight: 67 kg

DRUGS (22)
  1. TRASYLOL [Suspect]
     Indication: TRANSMYOCARDIAL REVASCULARISATION
     Dosage: 50 ML/HR
     Route: 042
     Dates: start: 20060717
  2. GLIPIZIDE [Concomitant]
     Dosage: 5 MG, BID
     Route: 048
  3. ACETYLSALICYLIC ACID SRT [Concomitant]
     Dosage: 325 MG, QD
     Route: 048
  4. PAPAVERINE [Concomitant]
     Dosage: UNK
     Route: 042
     Dates: start: 20060617
  5. TRASYLOL [Suspect]
     Indication: CORONARY ARTERY BYPASS
     Dosage: 200 ML
     Route: 042
     Dates: start: 20060717, end: 20060717
  6. SYNTHROID [Concomitant]
     Dosage: 50 MCG DAILY
     Route: 048
  7. LISINOPRIL [Concomitant]
     Dosage: 5 MG, QD
  8. PROPOFOL [Concomitant]
     Dosage: UNK
     Route: 042
     Dates: start: 20060617
  9. SODIUM NITROPRUSSIDE [Concomitant]
     Dosage: UNK
     Route: 042
     Dates: start: 20060617
  10. AMIODARONE HCL [Concomitant]
     Dosage: UNK
     Route: 042
     Dates: start: 20060717
  11. ANCEF [Concomitant]
     Dosage: UNK
     Route: 042
     Dates: start: 20060617
  12. SIMVASTATIN [Concomitant]
     Dosage: 40 MG, QD
     Route: 048
  13. MILRINONE [Concomitant]
     Dosage: UNK
     Route: 042
     Dates: start: 20060617
  14. LEVOPHED [Concomitant]
     Dosage: UNK
     Route: 042
     Dates: start: 20060617
  15. RED BLOOD CELLS [Concomitant]
  16. METOPROLOL TARTRATE [Concomitant]
     Dosage: 25 MG, BID
     Route: 048
  17. NITROGLYCERIN [Concomitant]
     Route: 060
  18. INSULIN [Concomitant]
     Dosage: 5 U, UNK
     Route: 042
     Dates: start: 20060617
  19. DOPAMINE HCL [Concomitant]
     Dosage: UNK
     Route: 042
     Dates: start: 20060617
  20. VECURONIUM BROMIDE [Concomitant]
     Dosage: UNK
     Route: 042
     Dates: start: 20060617
  21. SUFENTA PRESERVATIVE FREE [Concomitant]
     Dosage: UNK
     Route: 042
     Dates: start: 20060617
  22. HEPARIN [Concomitant]
     Route: 042

REACTIONS (12)
  - RENAL INJURY [None]
  - RENAL IMPAIRMENT [None]
  - UNEVALUABLE EVENT [None]
  - MULTI-ORGAN FAILURE [None]
  - FEAR [None]
  - PAIN [None]
  - INJURY [None]
  - CEREBROVASCULAR ACCIDENT [None]
  - EMOTIONAL DISTRESS [None]
  - ANXIETY [None]
  - RENAL FAILURE [None]
  - STRESS [None]
